FAERS Safety Report 5614569-2 (Version None)
Quarter: 2008Q1

REPORT INFORMATION
  Report Type: 
  Country: None (occurrence: None)
  Receive Date: 20080205
  Receipt Date: 20080110
  Transmission Date: 20080703
  Serious: No
  Sender: FDA-Public Use
  Company Number: US-BOEHRINGER INGELHEIM GMBH, GERMANY-2007-BP-26424BP

PATIENT
  Sex: Female

DRUGS (7)
  1. SPIRIVA [Suspect]
     Indication: CHRONIC OBSTRUCTIVE PULMONARY DISEASE
     Dates: start: 20060601, end: 20070120
  2. SPIRIVA [Suspect]
     Indication: EMPHYSEMA
  3. SINGULAIR [Concomitant]
  4. POTASSIUM CHLORIDE [Concomitant]
  5. EVISTA [Concomitant]
  6. PREVACID [Concomitant]
  7. ASPIRIN [Concomitant]

REACTIONS (1)
  - ORAL FUNGAL INFECTION [None]
